FAERS Safety Report 19357368 (Version 1)
Quarter: 2021Q2

REPORT INFORMATION
  Report Type: Spontaneous
  Country: US (occurrence: US)
  Receive Date: 20210602
  Receipt Date: 20210602
  Transmission Date: 20210717
  Serious: No
  Sender: FDA-Public Use
  Company Number: None

PATIENT
  Age: 61 Year
  Sex: Male

DRUGS (1)
  1. GENTAMICIN (GENTAMICIN SO4 1MG/ML INJ) [Suspect]
     Active Substance: GENTAMICIN SULFATE
     Indication: ANTIBIOTIC PROPHYLAXIS
     Route: 042
     Dates: start: 20200224, end: 20200224

REACTIONS (3)
  - Rash [None]
  - Hypotension [None]
  - Angioedema [None]

NARRATIVE: CASE EVENT DATE: 20200225
